APPROVED DRUG PRODUCT: DIVALPROEX SODIUM
Active Ingredient: DIVALPROEX SODIUM
Strength: EQ 500MG VALPROIC ACID
Dosage Form/Route: TABLET, DELAYED RELEASE;ORAL
Application: A078411 | Product #001
Applicant: PH HEALTH LTD
Approved: Nov 3, 2008 | RLD: No | RS: No | Type: DISCN